FAERS Safety Report 7917784-8 (Version None)
Quarter: 2011Q4

REPORT INFORMATION
  Report Type: 
  Country: None (occurrence: None)
  Receive Date: 20111114
  Receipt Date: 20111104
  Transmission Date: 20120403
  Serious: No
  Sender: FDA-Public Use
  Company Number: 7088645

PATIENT
  Age: 35 Year
  Sex: Female

DRUGS (3)
  1. LEVOTHYROXINE SODIUM [Suspect]
     Indication: HYPOTHYROIDISM
     Dosage: 12.5 MCG (12.5 MCG, 1 IN 1 D) 62.5 MCG (62.5 MCG, 1 IN 1 D)
     Route: 048
     Dates: start: 20090101, end: 20110101
  2. LEVOTHYROXINE SODIUM [Suspect]
     Indication: HYPOTHYROIDISM
     Dosage: 12.5 MCG (12.5 MCG, 1 IN 1 D) 62.5 MCG (62.5 MCG, 1 IN 1 D)
     Route: 048
     Dates: start: 20110101
  3. CRINONE [Concomitant]

REACTIONS (3)
  - MATERNAL EXPOSURE DURING DELIVERY [None]
  - FOETAL EXPOSURE DURING PREGNANCY [None]
  - ABORTION THREATENED [None]
